FAERS Safety Report 9135501 (Version 2)
Quarter: 2013Q1

REPORT INFORMATION
  Report Type: Spontaneous
  Country: ES (occurrence: None)
  Receive Date: 20130208
  Receipt Date: 20130208
  Transmission Date: 20140127
  Serious: Yes (Hospitalization)
  Sender: FDA-Public Use
  Company Number: 2012-1624

PATIENT
  Age: 70 Year
  Sex: Male
  Weight: 61.2 kg

DRUGS (5)
  1. CARFILZOMIB [Suspect]
     Indication: PLASMA CELL MYELOMA
     Dosage: 10.8571 MG (38 MG, DAYS 1,2), INTRAVENOUS
     Route: 042
     Dates: start: 20121022, end: 20121023
  2. DEXAMETHASONE (DEXAMETHASONE) [Concomitant]
  3. CIPROFLOXACINO (CIPROFLOXACIN HYDROCHLORIDE) (CIPROFLOXACIN HYDROCHLORIDE) [Concomitant]
  4. LANSOPRAZOL (LANSOPRAZOLE) (LANSOPRAZOLE) [Concomitant]
  5. VALCYTE (VALGANCICLOVIR HYDROCHLORIDE) (VALGANCICLOVIR HYDROCHLORIDE) [Suspect]

REACTIONS (3)
  - Cardiac disorder [None]
  - Tachycardia [None]
  - Renal impairment [None]
